FAERS Safety Report 14549488 (Version 2)
Quarter: 2018Q2

REPORT INFORMATION
  Report Type: Spontaneous
  Country: GB (occurrence: GB)
  Receive Date: 20180219
  Receipt Date: 20180622
  Transmission Date: 20180711
  Serious: Yes (Disabling, Other)
  Sender: FDA-Public Use
  Company Number: GB-TORRENT-00016095

PATIENT
  Age: 89 Year
  Sex: Female
  Weight: 83 kg

DRUGS (5)
  1. LOSARTAN. [Interacting]
     Active Substance: LOSARTAN
     Indication: LEFT VENTRICULAR FAILURE
     Route: 048
     Dates: start: 20170817
  2. ACETYLSALICYLIC ACID [Concomitant]
     Active Substance: ASPIRIN
     Indication: ATRIAL FIBRILLATION
     Route: 048
     Dates: start: 20160527
  3. FAMOTIDINE. [Concomitant]
     Active Substance: FAMOTIDINE
     Indication: HIATUS HERNIA
     Route: 048
     Dates: start: 20160527
  4. GAVISCON [Concomitant]
     Active Substance: ALUMINUM HYDROXIDE\MAGNESIUM CARBONATE
     Indication: HIATUS HERNIA
     Route: 048
     Dates: start: 20160527
  5. CIPROFLOXACIN. [Suspect]
     Active Substance: CIPROFLOXACIN
     Indication: CELLULITIS
     Dosage: UNKNOWN
     Dates: start: 20171207

REACTIONS (4)
  - Orthostatic hypotension [Recovered/Resolved]
  - Drug interaction [Unknown]
  - Syncope [Unknown]
  - Malaise [Unknown]

NARRATIVE: CASE EVENT DATE: 20171228
